FAERS Safety Report 6921983-1 (Version None)
Quarter: 2010Q3

REPORT INFORMATION
  Report Type: 
  Country: None (occurrence: None)
  Receive Date: 20100812
  Receipt Date: 20100729
  Transmission Date: 20110219
  Serious: Yes (Other)
  Sender: FDA-Public Use
  Company Number: PHHY2010US49842

PATIENT
  Sex: Female

DRUGS (3)
  1. ZOMETA [Suspect]
     Route: 065
  2. REVLIMID [Suspect]
     Indication: MULTIPLE MYELOMA
     Dosage: 10 MG, QD
     Route: 048
     Dates: start: 20080917
  3. AMOXICILLIN [Concomitant]

REACTIONS (2)
  - BONE DENSITY DECREASED [None]
  - BONE FRAGMENTATION [None]
